FAERS Safety Report 4519908-1 (Version None)
Quarter: 2004Q4

REPORT INFORMATION
  Report Type: 
  Country: None (occurrence: None)
  Receive Date: 20041207
  Receipt Date: 20041124
  Transmission Date: 20050328
  Serious: Yes (Other)
  Sender: FDA-Public Use
  Company Number: PHHO2004CH16757

PATIENT
  Sex: Female

DRUGS (4)
  1. LESCOL [Suspect]
     Indication: HYPERLIPIDAEMIA
     Dosage: 40 MG, UNK
     Route: 048
     Dates: start: 20010501, end: 20031019
  2. STUGERON [Concomitant]
  3. ASPIRIN [Concomitant]
  4. DANCOR [Concomitant]

REACTIONS (5)
  - BLOOD THYROID STIMULATING HORMONE INCREASED [None]
  - LIVER FUNCTION TEST ABNORMAL [None]
  - PROTEIN TOTAL INCREASED [None]
  - SERUM FERRITIN INCREASED [None]
  - THROMBOCYTOPENIA [None]
